FAERS Safety Report 8501538 (Version 3)
Quarter: 2012Q4

REPORT INFORMATION
  Report Type: 
  Country: US (occurrence: US)
  Receive Date: 20120410
  Receipt Date: 20121212
  Transmission Date: 20130627
  Serious: No
  Sender: FDA-Public Use
  Company Number: US-PFIZER INC-2012087539

PATIENT
  Age: 47 Year
  Sex: Male
  Weight: 128 kg

DRUGS (4)
  1. SOMAVERT [Suspect]
     Indication: ACROMEGALY
     Dosage: UNK
     Dates: end: 20120401
  2. SOMAVERT [Suspect]
     Dosage: 30 mg, 1x/day
     Dates: start: 20121203, end: 201212
  3. SOMAVERT [Suspect]
     Dosage: 40 mg, 1x/day
     Dates: start: 201212
  4. SOMATULINE [Concomitant]
     Indication: ACROMEGALY
     Dosage: once every twenty days

REACTIONS (10)
  - Abdominal distension [Unknown]
  - Urticaria [Unknown]
  - Oropharyngeal pain [Unknown]
  - Back pain [Unknown]
  - Diarrhoea [Unknown]
  - Nausea [Unknown]
  - Dizziness [Unknown]
  - Somnolence [Unknown]
  - Asthenia [Unknown]
  - Fatigue [Unknown]
